FAERS Safety Report 7333744-2 (Version None)
Quarter: 2011Q1

REPORT INFORMATION
  Report Type: 
  Country: None (occurrence: None)
  Receive Date: 20110306
  Receipt Date: 20110221
  Transmission Date: 20110831
  Serious: Yes (Other)
  Sender: FDA-Public Use
  Company Number: IT-MYLANLABS-2011S1003459

PATIENT
  Age: 67 Year
  Sex: Female

DRUGS (1)
  1. PACLITAXEL [Suspect]
     Indication: UTERINE CANCER
     Route: 042
     Dates: start: 20110214, end: 20110214

REACTIONS (2)
  - DERMATITIS ALLERGIC [None]
  - BRONCHOSPASM [None]
